FAERS Safety Report 6559401-8 (Version None)
Quarter: 2010Q1

REPORT INFORMATION
  Report Type: 
  Country: None (occurrence: None)
  Receive Date: 20100129
  Receipt Date: 20090902
  Transmission Date: 20100710
  Serious: No
  Sender: FDA-Public Use
  Company Number: US-ABBOTT-09P-163-0594836-00

PATIENT
  Sex: Female
  Weight: 141.65 kg

DRUGS (7)
  1. HUMIRA [Suspect]
     Indication: PSORIATIC ARTHROPATHY
     Dates: start: 20090213
  2. HUMIRA [Suspect]
     Indication: PSORIASIS
  3. METHOTREXATE [Concomitant]
     Indication: DRUG USE FOR UNKNOWN INDICATION
  4. CITALOPRAM [Concomitant]
     Indication: DRUG USE FOR UNKNOWN INDICATION
  5. FOLIC ACID [Concomitant]
     Indication: DRUG USE FOR UNKNOWN INDICATION
  6. LOTREL [Concomitant]
     Indication: DRUG USE FOR UNKNOWN INDICATION
  7. TRIAMTERENE AND HYDROCHLOROTHIAZIDE [Concomitant]
     Indication: DRUG USE FOR UNKNOWN INDICATION

REACTIONS (13)
  - BLOOD PRESSURE INCREASED [None]
  - BRONCHITIS [None]
  - COUGH [None]
  - DRUG DOSE OMISSION [None]
  - DYSPHONIA [None]
  - LYMPHADENOPATHY [None]
  - PARAESTHESIA [None]
  - PYREXIA [None]
  - RASH MACULAR [None]
  - RASH PAPULAR [None]
  - RASH PRURITIC [None]
  - RESPIRATORY TRACT CONGESTION [None]
  - VIRAL INFECTION [None]
